FAERS Safety Report 4454975-5 (Version None)
Quarter: 2004Q3

REPORT INFORMATION
  Report Type: 
  Country: None (occurrence: None)
  Receive Date: 20040824
  Receipt Date: 20040528
  Transmission Date: 20050211
  Serious: No
  Sender: FDA-Public Use
  Company Number: SU-2004-002413

PATIENT
  Sex: Male

DRUGS (1)
  1. BENICAR [Suspect]
     Indication: HYPERTENSION
     Dosage: 5 MG QD PO
     Route: 048

REACTIONS (4)
  - BLOOD CREATININE INCREASED [None]
  - HYPOTENSION [None]
  - INTESTINAL STOMA COMPLICATION [None]
  - PALLOR [None]
